FAERS Safety Report 7511825 (Version 5)
Quarter: 2014Q1

REPORT INFORMATION
  Report Type: Spontaneous
  Country: BR (occurrence: BR)
  Receive Date: 20100730
  Receipt Date: 20140201
  Transmission Date: 20141002
  Serious: Yes (Other)
  Sender: FDA-Public Use
  Company Number: BR-ROCHE-485895

PATIENT
  Sex: Male
  Weight: 65 kg

DRUGS (16)
  1. RIVOTRIL [Suspect]
     Indication: CEREBROVASCULAR ACCIDENT
     Dosage: 1/4 TABLET OF RIVOTRIL 2 MG A DAY
     Route: 048
  2. RIVOTRIL [Suspect]
     Indication: AGGRESSION
  3. RIVOTRIL [Suspect]
     Indication: NERVOUSNESS
  4. RIVOTRIL [Suspect]
     Indication: ANXIETY
  5. RIVOTRIL [Suspect]
     Indication: SEDATION
  6. CLONAZEPAM [Suspect]
     Indication: CEREBROVASCULAR ACCIDENT
     Route: 065
  7. CLONAZEPAM [Suspect]
     Indication: AGGRESSION
  8. VALIUM [Suspect]
     Indication: NERVOUSNESS
     Route: 065
     Dates: start: 1995
  9. VALIUM [Suspect]
     Indication: ANXIETY
  10. VALIUM [Suspect]
     Indication: SEDATION
  11. SIMVASTATIN [Concomitant]
     Indication: BLOOD CHOLESTEROL ABNORMAL
     Route: 065
  12. AAS INFANTIL [Concomitant]
     Indication: BLOOD CHOLESTEROL ABNORMAL
     Dosage: OTHER INDICATION: TO THIN THE BLOOD
     Route: 065
  13. BUCLIZINE HYDROCHLORIDE [Concomitant]
     Indication: DECREASED APPETITE
     Dosage: DRUG REPORTED AS BUCLINA
     Route: 065
     Dates: start: 201006, end: 2010
  14. PROPRANOLOL [Concomitant]
     Indication: HYPERTENSION
     Route: 065
  15. NIFEDIPINE [Concomitant]
     Indication: HYPERTENSION
     Route: 065
  16. CARBAMAZEPINE [Concomitant]
     Indication: BLOOD PRESSURE

REACTIONS (7)
  - Cerebrovascular accident [Recovered/Resolved]
  - Therapeutic response decreased [Unknown]
  - Sleep disorder [Not Recovered/Not Resolved]
  - Somnolence [Not Recovered/Not Resolved]
  - Anaemia [Unknown]
  - Tremor [Not Recovered/Not Resolved]
  - Headache [Not Recovered/Not Resolved]
